FAERS Safety Report 15951151 (Version 2)
Quarter: 2019Q1

REPORT INFORMATION
  Report Type: Report from Study
  Country: TW (occurrence: TW)
  Receive Date: 20190212
  Receipt Date: 20190227
  Transmission Date: 20190417
  Serious: Yes (Death, Life-Threatening, Hospitalization, Other)
  Sender: FDA-Public Use
  Company Number: TW-BRISTOL-MYERS SQUIBB COMPANY-BMS-2019-010144

PATIENT
  Age: 66 Year
  Sex: Female

DRUGS (1)
  1. ABATACEPT [Suspect]
     Active Substance: ABATACEPT
     Indication: RHEUMATOID ARTHRITIS
     Dosage: 500 MG, QMO
     Route: 041
     Dates: start: 20181012, end: 20181207

REACTIONS (16)
  - Pneumocystis jirovecii pneumonia [Fatal]
  - Urine output decreased [Unknown]
  - Cerebrovascular accident [Unknown]
  - Acute kidney injury [Unknown]
  - Pulmonary oedema [Unknown]
  - Procedural pneumothorax [Unknown]
  - Metabolic acidosis [Unknown]
  - Hypotension [Unknown]
  - Diarrhoea [Unknown]
  - Cerebral thrombosis [Unknown]
  - Encephalitis [Unknown]
  - Vomiting [Unknown]
  - Acute respiratory failure [Unknown]
  - Aspergillus infection [Unknown]
  - Adenocarcinoma [Unknown]
  - Pancytopenia [Unknown]

NARRATIVE: CASE EVENT DATE: 20181228
